FAERS Safety Report 6809243-0 (Version None)
Quarter: 2010Q2

REPORT INFORMATION
  Report Type: 
  Country: None (occurrence: None)
  Receive Date: 20100630
  Receipt Date: 20100609
  Transmission Date: 20101027
  Serious: Yes (Hospitalization, Other)
  Sender: FDA-Public Use
  Company Number: US-BAYER-200934556NA

PATIENT
  Age: 23 Year
  Sex: Female
  Weight: 125 kg

DRUGS (16)
  1. YAZ [Suspect]
     Indication: PREMENSTRUAL SYNDROME
     Dosage: TOTAL DAILY DOSE: 1 DF
     Route: 048
     Dates: start: 20050901, end: 20061201
  2. YAZ [Suspect]
     Dosage: TOTAL DAILY DOSE: 1 DF
     Route: 048
     Dates: start: 20081101, end: 20090101
  3. YASMIN [Suspect]
     Indication: PREMENSTRUAL SYNDROME
     Route: 048
     Dates: start: 20081101, end: 20090101
  4. YASMIN [Suspect]
     Route: 048
     Dates: start: 20050901, end: 20061201
  5. OCELLA [Suspect]
     Indication: PREMENSTRUAL SYNDROME
     Route: 048
     Dates: start: 20081101, end: 20090101
  6. OCELLA [Suspect]
     Route: 048
     Dates: start: 20050901, end: 20061201
  7. ANTIBIOTICS [Concomitant]
     Indication: BRONCHITIS
  8. NSAID'S [Concomitant]
     Indication: DRUG USE FOR UNKNOWN INDICATION
  9. VITAMIN C [Concomitant]
     Dates: start: 19990101
  10. MOTRIN [Concomitant]
     Dates: start: 19970101
  11. ALEVE (CAPLET) [Concomitant]
     Dates: start: 19970101
  12. CHAMOMILE [Concomitant]
  13. HYDROCODONE [Concomitant]
     Dates: start: 20071201
  14. OMEPRAZOLE [Concomitant]
  15. INDOCIN [Concomitant]
  16. TRI-SPRINTEC [Concomitant]
     Dates: start: 20080101

REACTIONS (12)
  - ABDOMINAL PAIN [None]
  - ABDOMINAL PAIN LOWER [None]
  - ABDOMINAL PAIN UPPER [None]
  - CHEST PAIN [None]
  - CHOLECYSTITIS CHRONIC [None]
  - CHOLELITHIASIS [None]
  - DYSPNOEA [None]
  - NAUSEA [None]
  - OVARIAN ENLARGEMENT [None]
  - PHLEBOLITH [None]
  - UPPER RESPIRATORY TRACT INFECTION [None]
  - VOMITING [None]
